FAERS Safety Report 8556233-6 (Version None)
Quarter: 2012Q3

REPORT INFORMATION
  Report Type: 
  Country: None (occurrence: None)
  Receive Date: 20120719
  Receipt Date: 20120608
  Transmission Date: 20120928
  Serious: Yes (Hospitalization)
  Sender: FDA-Public Use
  Company Number: US-2012-10666

PATIENT
  Age: 42 Year
  Sex: Female

DRUGS (1)
  1. BUSULFEX [Suspect]
     Dosage: 190 MG MILLIGRAM(S), DAILY DOSE
     Dates: start: 20110425, end: 20110428

REACTIONS (1)
  - HALLUCINATION, AUDITORY [None]
